FAERS Safety Report 15873134 (Version 1)
Quarter: 2019Q1

REPORT INFORMATION
  Report Type: Other
  Country: US (occurrence: US)
  Receive Date: 20190126
  Receipt Date: 20190126
  Transmission Date: 20190417
  Serious: No
  Sender: FDA-Public Use
  Company Number: US-ACORDA-ACO_149497_2018

PATIENT
  Age: 77 Year
  Sex: Female

DRUGS (1)
  1. AMPYRA [Suspect]
     Active Substance: DALFAMPRIDINE
     Indication: MULTIPLE SCLEROSIS
     Dosage: 10 MG, Q 12 HRS
     Route: 048

REACTIONS (4)
  - Herpes zoster [Unknown]
  - Pain [Unknown]
  - Inflammation [Unknown]
  - Pruritus [Unknown]

NARRATIVE: CASE EVENT DATE: 201708
